FAERS Safety Report 7251177-4 (Version None)
Quarter: 2011Q1

REPORT INFORMATION
  Report Type: 
  Country: None (occurrence: None)
  Receive Date: 20110128
  Receipt Date: 20110118
  Transmission Date: 20110831
  Serious: Yes (Death, Hospitalization)
  Sender: FDA-Public Use
  Company Number: HU-ELI_LILLY_AND_COMPANY-HU201101002224

PATIENT
  Sex: Female
  Weight: 50 kg

DRUGS (8)
  1. GEMCITABINE HYDROCHLORIDE [Suspect]
     Indication: NON-SMALL CELL LUNG CANCER
     Dosage: 1875 MG, UNK
     Dates: start: 20101229
  2. CERUCAL [Concomitant]
     Indication: PROPHYLAXIS OF NAUSEA AND VOMITING
     Dosage: UNK, UNK
     Dates: start: 20101125, end: 20110109
  3. ATORIS [Concomitant]
     Indication: PROPHYLAXIS
     Dates: start: 20101125, end: 20110109
  4. EMETRON [Concomitant]
     Indication: PROPHYLAXIS
  5. DICLAC                             /00372302/ [Concomitant]
     Indication: PROPHYLAXIS
     Dates: start: 20101125, end: 20110109
  6. BETALOC ZOK [Concomitant]
     Indication: PROPHYLAXIS
     Dates: start: 20101228, end: 20110109
  7. CISPLATIN [Suspect]
     Indication: NON-SMALL CELL LUNG CANCER
     Dosage: 110 MG, UNK
     Dates: start: 20101229
  8. QUAMATEL [Concomitant]
     Indication: PROPHYLAXIS
     Dates: start: 20101125, end: 20110109

REACTIONS (2)
  - ACUTE RESPIRATORY FAILURE [None]
  - NEOPLASM MALIGNANT [None]
